FAERS Safety Report 20229238 (Version 1)
Quarter: 2021Q4

REPORT INFORMATION
  Report Type: Spontaneous
  Country: JP (occurrence: JP)
  Receive Date: 20211225
  Receipt Date: 20211225
  Transmission Date: 20220304
  Serious: Yes (Hospitalization, Other)
  Sender: FDA-Public Use
  Company Number: JP-TAKEDA-2021TUS067672

PATIENT
  Sex: Male
  Weight: 7.5 kg

DRUGS (2)
  1. LIALDA [Suspect]
     Active Substance: MESALAMINE
     Indication: Colitis ulcerative
     Dosage: 2400 MILLIGRAM, QD
     Route: 048
     Dates: start: 20210819, end: 20210902
  2. BIO-THREE [Concomitant]
     Active Substance: HERBALS
     Indication: Colitis ulcerative
     Dosage: UNK
     Route: 048
     Dates: start: 20210811, end: 20210902

REACTIONS (1)
  - Pancreatitis acute [Recovering/Resolving]

NARRATIVE: CASE EVENT DATE: 20210101
